FAERS Safety Report 21051534 (Version 1)
Quarter: 2022Q3

REPORT INFORMATION
  Report Type: Spontaneous
  Country: US (occurrence: None)
  Receive Date: 20220706
  Receipt Date: 20220706
  Transmission Date: 20221026
  Serious: Yes (Hospitalization)
  Sender: FDA-Public Use
  Company Number: None

PATIENT
  Sex: Female

DRUGS (2)
  1. PULMOZYME [Suspect]
     Active Substance: DORNASE ALFA
     Indication: Cystic fibrosis
     Dosage: 1 MG TWICE A DAY VIA NEBULIZER
     Route: 055
     Dates: start: 202107
  2. ATENOLOL [Concomitant]
     Active Substance: ATENOLOL

REACTIONS (1)
  - Emergency care [None]
